FAERS Safety Report 24324280 (Version 2)
Quarter: 2024Q3

REPORT INFORMATION
  Report Type: Spontaneous
  Country: US (occurrence: US)
  Receive Date: 20240916
  Receipt Date: 20240919
  Transmission Date: 20241017
  Serious: Yes (Death, Other)
  Sender: PFIZER
  Company Number: US-MLMSERVICE-20240904-PI183878-00082-1

PATIENT
  Age: 52 Year
  Sex: Female

DRUGS (8)
  1. CARBOPLATIN [Suspect]
     Active Substance: CARBOPLATIN
     Indication: Lung adenocarcinoma stage IV
     Dosage: ONE CYCLE (CYCLE = TREATMENT EVERY 3 WEEKS
     Dates: start: 202005, end: 202006
  2. PEMETREXED [Suspect]
     Active Substance: PEMETREXED
     Indication: Lung adenocarcinoma stage IV
     Dosage: FIRST-LINE THERAPY. ONE CYCLE (CYCLE = TREATMENT EVERY 3 WEEKS)
     Dates: start: 202005, end: 202007
  3. PEMBROLIZUMAB [Suspect]
     Active Substance: PEMBROLIZUMAB
     Indication: Lung adenocarcinoma stage IV
     Dosage: FIRST-LINE THERAPY. ADDED TO THE TREATMENT REGIMEN AT CYCLE 2
     Dates: start: 202005
  4. SILDENAFIL [Concomitant]
     Active Substance: SILDENAFIL
     Indication: Pulmonary arterial hypertension
     Dosage: 20 MG, 3X/DAY
     Dates: start: 201412
  5. MACITENTAN [Concomitant]
     Active Substance: MACITENTAN
     Indication: Pulmonary arterial hypertension
     Dosage: 10 MG
     Dates: start: 201412
  6. RIOCIGUAT [Concomitant]
     Active Substance: RIOCIGUAT
     Indication: Lung adenocarcinoma stage IV
     Dosage: 2.5 MG, 3X/DAY
  7. SELEXIPAG [Concomitant]
     Active Substance: SELEXIPAG
     Indication: Pulmonary arterial hypertension
     Dosage: 1600 MG
  8. EPOPROSTENOL [Concomitant]
     Active Substance: EPOPROSTENOL
     Indication: Pulmonary arterial hypertension
     Dosage: UNK
     Route: 042
     Dates: start: 201412

REACTIONS (8)
  - Pulmonary veno-occlusive disease [Fatal]
  - Pulmonary arterial hypertension [Unknown]
  - Condition aggravated [Unknown]
  - Pancytopenia [Unknown]
  - Cancer fatigue [Unknown]
  - Dyspnoea [Unknown]
  - Off label use [Unknown]
  - Drug effective for unapproved indication [Unknown]

NARRATIVE: CASE EVENT DATE: 20200501
